FAERS Safety Report 10787229 (Version 2)
Quarter: 2015Q1

REPORT INFORMATION
  Report Type: Report from Study
  Country: NL (occurrence: NL)
  Receive Date: 20150211
  Receipt Date: 20150213
  Transmission Date: 20150721
  Serious: Yes (Other)
  Sender: FDA-Public Use
  Company Number: NL-BRISTOL-MYERS SQUIBB COMPANY-21351689

PATIENT
  Sex: Female

DRUGS (14)
  1. CALCI CHEW D3 [Concomitant]
     Active Substance: CALCIUM CARBONATE\CHOLECALCIFEROL
     Indication: OSTEOPOROSIS
     Dosage: UNK, QD
     Route: 065
  2. OMEPRAZOL ACTAVIS [Concomitant]
     Active Substance: OMEPRAZOLE
     Indication: GASTRIC ULCER
     Dosage: 20 MG, BID
     Route: 065
  3. DILTIAZEM HCL [Concomitant]
     Active Substance: DILTIAZEM HYDROCHLORIDE
     Indication: ANGINA PECTORIS
     Dosage: 60 MG, TID
     Route: 065
  4. NAPROXEN ACCORD [Concomitant]
     Indication: RHEUMATOID ARTHRITIS
     Dosage: UNK, PRN
     Route: 065
  5. ASPIRIN. [Concomitant]
     Active Substance: ASPIRIN
     Indication: ANGINA PECTORIS
     Dosage: 80 MG, QD
     Route: 065
  6. ALENDRONINEZUUR ACTAVIS [Concomitant]
     Indication: OSTEOPOROSIS
     Dosage: 70 MG, QWK
     Route: 065
  7. PANADOL ATROSE [Concomitant]
     Indication: RHEUMATOID ARTHRITIS
     Dosage: 1000 MG, TID
     Route: 065
  8. TAVONIN [Concomitant]
     Indication: PRODUCT USED FOR UNKNOWN INDICATION
     Dosage: 40 MG, BID
     Route: 065
  9. BUMETANIDE ACTAVIS [Concomitant]
     Indication: HYPERTENSION
     Route: 065
  10. CRESTOR [Concomitant]
     Active Substance: ROSUVASTATIN CALCIUM
     Indication: DYSLIPIDAEMIA
     Dosage: 20 MG, QD
     Route: 065
  11. PERINDOPRIL TERT-BUTYLAMINE [Concomitant]
     Indication: HYPERTENSION
     Dosage: 4 MG, QD
     Route: 065
  12. ABATACEPT [Suspect]
     Active Substance: ABATACEPT
     Indication: RHEUMATOID ARTHRITIS
     Dosage: 1DF: 125MG/ML
     Route: 058
     Dates: start: 20140507
  13. NITROLINGUAL [Concomitant]
     Active Substance: NITROGLYCERIN
     Indication: ANGINA PECTORIS
     Dosage: UNK, PRN
     Route: 065
  14. TEMAZEPAM ACTAVIS [Concomitant]
     Indication: INSOMNIA
     Dosage: 10 MG, PRN
     Route: 065

REACTIONS (2)
  - Angina pectoris [Unknown]
  - Temporal arteritis [Unknown]

NARRATIVE: CASE EVENT DATE: 20140620
